FAERS Safety Report 23972544 (Version 2)
Quarter: 2025Q2

REPORT INFORMATION
  Report Type: Spontaneous
  Country: US (occurrence: US)
  Receive Date: 20240613
  Receipt Date: 20250502
  Transmission Date: 20250716
  Serious: No
  Sender: MARINUS PHARMACEUTICALS
  Company Number: US-MARINUS PHARMACEUTICALS, INC.-MAR2024000115

PATIENT

DRUGS (2)
  1. ZTALMY [Suspect]
     Active Substance: GANAXOLONE
     Indication: Acquired epileptic aphasia
     Route: 048
     Dates: start: 202311
  2. DEPAKOTE ER [Concomitant]
     Active Substance: DIVALPROEX SODIUM
     Indication: Product used for unknown indication
     Route: 065

REACTIONS (2)
  - Off label use [Unknown]
  - Drug effective for unapproved indication [Unknown]

NARRATIVE: CASE EVENT DATE: 20230101
